FAERS Safety Report 8011369-3 (Version None)
Quarter: 2011Q4

REPORT INFORMATION
  Report Type: 
  Country: None (occurrence: None)
  Receive Date: 20111228
  Receipt Date: 20111228
  Transmission Date: 20120403
  Serious: Yes (Other)
  Sender: FDA-Public Use
  Company Number: None

PATIENT
  Age: 35 Year
  Sex: Female
  Weight: 80.739 kg

DRUGS (1)
  1. CLONAZEPAM [Suspect]
     Indication: DYSKINESIA
     Dosage: 0.5 MG
     Route: 048
     Dates: start: 20111118, end: 20111208

REACTIONS (8)
  - PRESYNCOPE [None]
  - FATIGUE [None]
  - EYE MOVEMENT DISORDER [None]
  - AMNESIA [None]
  - READING DISORDER [None]
  - DEAFNESS [None]
  - CONFUSIONAL STATE [None]
  - FEELING ABNORMAL [None]
